FAERS Safety Report 7260905-3 (Version None)
Quarter: 2011Q1

REPORT INFORMATION
  Report Type: 
  Country: None (occurrence: None)
  Receive Date: 20110130
  Receipt Date: 20101221
  Transmission Date: 20110831
  Serious: No
  Sender: FDA-Public Use
  Company Number: US-ABBOTT-10P-163-0693822-00

PATIENT
  Sex: Female
  Weight: 90.8 kg

DRUGS (17)
  1. CALCIUM W/VITAMIN D [Concomitant]
     Indication: MINERAL SUPPLEMENTATION
  2. MULTI-VITAMINS [Concomitant]
     Indication: VITAMIN SUPPLEMENTATION
  3. MAXALT [Concomitant]
     Indication: MIGRAINE
  4. ACETAMINOPHEN W/ PROPOXYPHENE HCL [Concomitant]
     Indication: PAIN
  5. BEENO [Concomitant]
     Indication: FLATULENCE
  6. ALPRAZOLAM [Concomitant]
     Indication: PALPITATIONS
  7. VITAMIN D [Concomitant]
     Indication: VITAMIN SUPPLEMENTATION
     Dosage: 1000 IU
  8. HUMIRA [Suspect]
     Indication: RHEUMATOID ARTHRITIS
     Dates: start: 20071001
  9. ALPRAZOLAM [Concomitant]
     Indication: TREMOR
  10. BENADRYL [Concomitant]
     Indication: HYPERSENSITIVITY
  11. IMIPRAMINE [Concomitant]
     Indication: MIGRAINE
  12. LYRICA [Suspect]
     Indication: FIBROMYALGIA
     Dates: start: 20070101
  13. COMBIVENT [Concomitant]
     Indication: DYSPNOEA
  14. FOLIC ACID [Concomitant]
     Indication: ALOPECIA
  15. PLAQUENIL [Concomitant]
     Indication: RHEUMATOID ARTHRITIS
  16. ACETAMINOPHEN W/ PROPOXYPHENE HCL [Concomitant]
     Indication: HEADACHE
  17. NASACORT [Concomitant]
     Indication: HYPERSENSITIVITY

REACTIONS (8)
  - MYALGIA [None]
  - VIRAL INFECTION [None]
  - TOOTH FRACTURE [None]
  - DENTAL CARIES [None]
  - WEIGHT INCREASED [None]
  - RASH [None]
  - SJOGREN'S SYNDROME [None]
  - FIBROMYALGIA [None]
